FAERS Safety Report 4749957-X (Version None)
Quarter: 2005Q3

REPORT INFORMATION
  Report Type: 
  Country: None (occurrence: None)
  Receive Date: 20050822
  Receipt Date: 20050309
  Transmission Date: 20060218
  Serious: Yes (Hospitalization, Disabling)
  Sender: FDA-Public Use
  Company Number: US-MERCK-0503USA01944

PATIENT
  Age: 64 Year
  Sex: Male
  Weight: 107 kg

DRUGS (4)
  1. VIOXX [Suspect]
     Indication: OSTEOARTHRITIS
     Route: 048
     Dates: start: 20000313, end: 20001024
  2. VIOXX [Suspect]
     Route: 048
     Dates: start: 20001025, end: 20020401
  3. TOPROL-XL [Concomitant]
     Indication: HYPERTENSION
     Route: 048
     Dates: start: 19990623, end: 20050617
  4. CARDURA [Concomitant]
     Indication: HYPERTENSION
     Route: 065
     Dates: start: 19990416, end: 20050117

REACTIONS (8)
  - ATHEROSCLEROSIS [None]
  - BLOOD CHOLESTEROL INCREASED [None]
  - HIP ARTHROPLASTY [None]
  - JOINT SURGERY [None]
  - MYOCARDIAL INFARCTION [None]
  - PEPTIC ULCER [None]
  - POLYTRAUMATISM [None]
  - ROTATOR CUFF REPAIR [None]
